FAERS Safety Report 10233978 (Version 2)
Quarter: 2014Q2

REPORT INFORMATION
  Report Type: Report from Study
  Country: US (occurrence: US)
  Receive Date: 20140612
  Receipt Date: 20140612
  Transmission Date: 20141212
  Serious: Yes (Other)
  Sender: FDA-Public Use
  Company Number: PHEH2014US006569

PATIENT
  Age: 36 Year
  Sex: Female
  Weight: 57.14 kg

DRUGS (3)
  1. GILENYA [Suspect]
     Indication: MULTIPLE SCLEROSIS
     Dosage: 0.5 MG, QD
     Route: 048
     Dates: start: 20140401
  2. TIZANIDINE [Suspect]
  3. PRIMIDONE [Suspect]

REACTIONS (10)
  - Loss of consciousness [Recovered/Resolved]
  - Nerve compression [Unknown]
  - Feeling abnormal [Recovering/Resolving]
  - Chest discomfort [Recovered/Resolved]
  - Joint injury [Unknown]
  - Accident [Unknown]
  - Nausea [Recovered/Resolved]
  - Paranasal sinus discomfort [Unknown]
  - Headache [Not Recovered/Not Resolved]
  - Eye infection [Recovered/Resolved]
